FAERS Safety Report 24423679 (Version 2)
Quarter: 2024Q4

REPORT INFORMATION
  Report Type: Spontaneous
  Country: US (occurrence: US)
  Receive Date: 20241010
  Receipt Date: 20241120
  Transmission Date: 20250115
  Serious: Yes (Other)
  Sender: PFIZER
  Company Number: US-PFIZER INC-202400270595

PATIENT
  Age: 58 Year
  Sex: Female
  Weight: 79.378 kg

DRUGS (18)
  1. XELJANZ XR [Suspect]
     Active Substance: TOFACITINIB CITRATE
     Indication: Rheumatoid arthritis
     Dosage: TAKE 11 MG TABLET ORAL DAILY
     Route: 048
     Dates: start: 20240729
  2. LISINOPRIL [Concomitant]
     Active Substance: LISINOPRIL
     Dosage: 40 MG, DAILY
     Route: 048
  3. VITAMIN B COMPLEX [Concomitant]
     Active Substance: CYANOCOBALAMIN\DEXPANTHENOL\NIACINAMIDE\PYRIDOXINE HYDROCHLORIDE\RIBOFLAVIN 5^-PHOSPHATE SODIUM\THIA
     Dosage: UNK, DAILY
     Route: 048
  4. DILTIAZEM HYDROCHLORIDE [Concomitant]
     Active Substance: DILTIAZEM HYDROCHLORIDE
     Dosage: 120 MG, DAILY
     Route: 048
  5. ARAVA [Concomitant]
     Active Substance: LEFLUNOMIDE
     Dosage: 20 MG, DAILY
     Route: 048
     Dates: start: 20240522
  6. ACETAMINOPHEN AND CODEINE [Concomitant]
     Active Substance: ACETAMINOPHEN\CODEINE PHOSPHATE
     Dosage: 1 DF,  THREE TIMES DAILY AS NEEDED
     Route: 048
     Dates: start: 20240227
  7. NARCAN [Concomitant]
     Active Substance: NALOXONE HYDROCHLORIDE
     Dosage: 4MG/ACTUATI SPRAY, NON-AERO, 1 (ONE) INTRANASAL IN 1 NOSTRIL X 1 FOR EMERGENCY USE ONLY
     Route: 045
     Dates: start: 20240827
  8. ZYRTEC [Concomitant]
     Active Substance: CETIRIZINE HYDROCHLORIDE
     Dosage: 10 MG, AS NEEDED
     Route: 048
  9. PYRIDOXINE [Concomitant]
     Active Substance: PYRIDOXINE
     Dosage: 1 DF, DAILY
     Route: 048
  10. VITAMIN D NOS [Concomitant]
     Active Substance: CHOLECALCIFEROL\ERGOCALCIFEROL
     Dosage: 1 DF, DAILY
     Route: 048
  11. MAGNESIUM + VITAMIN D3 WITH TURMERIC [Concomitant]
     Dosage: (500-3000-150MG) DAILY
     Route: 048
  12. POTASSIUM [Concomitant]
     Active Substance: POTASSIUM
     Dosage: 99 MG, 3X/DAY
     Route: 048
  13. ORPHENADRINE COMPOUND [ACETYLSALICYLIC ACID;CAFFEINE;ORPHENADRINE CITR [Concomitant]
     Dosage: 100 MG, AS NEEDED
     Route: 048
  14. HYDROCHLOROTHIAZIDE [Concomitant]
     Active Substance: HYDROCHLOROTHIAZIDE
     Dosage: 25 MG, DAILY
     Route: 048
  15. FYAVOLV [Concomitant]
     Active Substance: ETHINYL ESTRADIOL\NORETHINDRONE ACETATE
     Dosage: UNK, DAILY
     Route: 048
  16. PREDNISONE [Concomitant]
     Active Substance: PREDNISONE
     Dosage: 10 MG, DAILY
  17. PREDNISONE [Concomitant]
     Active Substance: PREDNISONE
     Dosage: 15 MG, ONCE A WEEK
  18. PREDNISONE [Concomitant]
     Active Substance: PREDNISONE
     Dosage: AS NEEDED

REACTIONS (12)
  - Fall [Unknown]
  - Fibula fracture [Unknown]
  - Tibia fracture [Unknown]
  - Ankle fracture [Unknown]
  - Musculoskeletal stiffness [Unknown]
  - Normocytic anaemia [Unknown]
  - Poor quality sleep [Unknown]
  - Anxiety [Unknown]
  - Nervousness [Unknown]
  - Depression [Unknown]
  - Depressed mood [Unknown]
  - Exposure to communicable disease [Unknown]

NARRATIVE: CASE EVENT DATE: 20240101
